FAERS Safety Report 25363812 (Version 1)
Quarter: 2025Q2

REPORT INFORMATION
  Report Type: Spontaneous
  Country: US (occurrence: None)
  Receive Date: 20250527
  Receipt Date: 20250527
  Transmission Date: 20250716
  Serious: Yes (Hospitalization)
  Sender: FDA-CTU
  Company Number: None

PATIENT
  Sex: Female

DRUGS (2)
  1. NUCALA [Suspect]
     Active Substance: MEPOLIZUMAB
     Indication: Asthma
     Dosage: OTHER QUANTITY : 1 PEN ;?FREQUENCY : MONTHLY;?
     Route: 058
     Dates: start: 20230810
  2. ETHACRYNIC [Concomitant]

REACTIONS (2)
  - Fall [None]
  - Asthma [None]
